FAERS Safety Report 4333977-3 (Version None)
Quarter: 2004Q2

REPORT INFORMATION
  Report Type: 
  Country: None (occurrence: None)
  Receive Date: 20040402
  Receipt Date: 20040319
  Transmission Date: 20050107
  Serious: Yes (Hospitalization)
  Sender: FDA-Public Use
  Company Number: 2004-BP-02220EX

PATIENT
  Age: 63 Year
  Sex: Female

DRUGS (4)
  1. LEUCOVORIN CALCIUM [Suspect]
     Indication: COLON CANCER
     Dosage: 75 MG (NR), PO
     Route: 048
     Dates: start: 20030910
  2. LEUCOVORIN CALCIUM [Suspect]
     Indication: COLON CANCER
     Dosage: 75 MG (NR), PO
     Route: 048
     Dates: start: 20040107
  3. UFT [Suspect]
     Indication: COLON CANCER
     Dosage: 5 CAPSULES PER DAY (NR), PO; 4 CAPSULES A DAY (NR), PO
     Route: 048
     Dates: start: 20030910
  4. UFT [Suspect]
     Indication: COLON CANCER
     Dosage: 5 CAPSULES PER DAY (NR), PO; 4 CAPSULES A DAY (NR), PO
     Route: 048
     Dates: start: 20040107

REACTIONS (4)
  - ALANINE AMINOTRANSFERASE INCREASED [None]
  - ASPARTATE AMINOTRANSFERASE INCREASED [None]
  - BLOOD BILIRUBIN INCREASED [None]
  - EOSINOPHIL COUNT INCREASED [None]
